FAERS Safety Report 6169374-8 (Version None)
Quarter: 2009Q2

REPORT INFORMATION
  Report Type: 
  Country: None (occurrence: None)
  Receive Date: 20090424
  Receipt Date: 20090416
  Transmission Date: 20091009
  Serious: Yes (Other)
  Sender: FDA-Public Use
  Company Number: 2009SP008402

PATIENT
  Age: 9 Year
  Sex: Male

DRUGS (1)
  1. NASONEX [Suspect]
     Indication: DRUG USE FOR UNKNOWN INDICATION
     Dates: start: 20090401

REACTIONS (1)
  - EPILEPSY [None]
